FAERS Safety Report 6669030-3 (Version None)
Quarter: 2010Q2

REPORT INFORMATION
  Report Type: 
  Country: None (occurrence: None)
  Receive Date: 20100406
  Receipt Date: 20100331
  Transmission Date: 20101027
  Serious: Yes (Hospitalization, Other)
  Sender: FDA-Public Use
  Company Number: JP-BAYER-201011255BYL

PATIENT
  Age: 68 Year
  Sex: Female

DRUGS (2)
  1. FLUDARA [Suspect]
     Indication: CHRONIC LYMPHOCYTIC LEUKAEMIA
     Route: 065
     Dates: start: 20070901
  2. RITUXIMAB(GENETICAL RECOMBINATION) [Concomitant]
     Indication: CHRONIC LYMPHOCYTIC LEUKAEMIA
     Route: 041
     Dates: start: 20070901

REACTIONS (3)
  - CHRONIC MYELOID LEUKAEMIA TRANSFORMATION [None]
  - FOCAL SEGMENTAL GLOMERULOSCLEROSIS [None]
  - LEUKAEMIC INFILTRATION [None]
